FAERS Safety Report 7351401-3 (Version None)
Quarter: 2011Q1

REPORT INFORMATION
  Report Type: 
  Country: None (occurrence: None)
  Receive Date: 20110314
  Receipt Date: 20110310
  Transmission Date: 20110831
  Serious: Yes (Death)
  Sender: FDA-Public Use
  Company Number: PHHY2011US19580

PATIENT
  Sex: Male

DRUGS (12)
  1. VITAMIN D [Concomitant]
     Dosage: 1000 U, UNK
  2. CALCIUM DOBESILATE [Concomitant]
  3. SYNTHROID [Concomitant]
     Dosage: 112 UG, UNK
  4. COMBIVENT                               /GFR/ [Concomitant]
  5. SPIRIVA [Concomitant]
  6. TASIGNA [Suspect]
     Dosage: 150 MG, BID
     Route: 048
  7. PANTOPRAZOLE [Concomitant]
     Dosage: 40 MG, UNK
  8. LOSARTAN POTASSIUM [Concomitant]
     Dosage: 100 MG, UNK
  9. MIRAPEX [Concomitant]
     Dosage: 0.375 MG, UNK
  10. FLOVENT [Concomitant]
     Dosage: 110 UG, UNK
  11. LASIX [Concomitant]
     Dosage: 20 MG, UNK
  12. COUMADIN [Concomitant]
     Dosage: 10 MG, UNK

REACTIONS (1)
  - DEATH [None]
